FAERS Safety Report 24321880 (Version 4)
Quarter: 2024Q3

REPORT INFORMATION
  Report Type: Spontaneous
  Country: US (occurrence: US)
  Receive Date: 20240916
  Receipt Date: 20240926
  Transmission Date: 20241017
  Serious: Yes (Other)
  Sender: ROCHE
  Company Number: US-ROCHE-10000078308

PATIENT
  Age: 40 Year
  Sex: Female
  Weight: 65.77 kg

DRUGS (51)
  1. XOLAIR [Suspect]
     Active Substance: OMALIZUMAB
     Indication: Chronic spontaneous urticaria
     Route: 058
     Dates: start: 20200728
  2. XOLAIR [Suspect]
     Active Substance: OMALIZUMAB
     Route: 058
  3. XOLAIR [Suspect]
     Active Substance: OMALIZUMAB
     Dosage: LAST DOSE RECEIVED ON 03-SEP-2024
     Route: 058
     Dates: start: 2021
  4. XOLAIR [Suspect]
     Active Substance: OMALIZUMAB
     Indication: Chronic spontaneous urticaria
     Route: 058
     Dates: end: 2021
  5. XOLAIR [Suspect]
     Active Substance: OMALIZUMAB
  6. ONDANSETRON [Concomitant]
     Active Substance: ONDANSETRON
     Indication: Nausea
     Dosage: AS NEEDED
     Route: 060
  7. ZINC PICOLINATE [Concomitant]
     Active Substance: ZINC PICOLINATE
     Route: 048
  8. LEVOTHYROXINE [Concomitant]
     Active Substance: LEVOTHYROXINE\LEVOTHYROXINE SODIUM
     Indication: Hypothyroidism
     Dosage: EVERY MORNING
     Route: 048
  9. XYZAL [Concomitant]
     Active Substance: LEVOCETIRIZINE DIHYDROCHLORIDE
     Indication: Hypersensitivity
     Dosage: IF PATIENT IS HAVING A FLARE SHE TAKES XYZAL THREE TIMES A DAY
     Route: 048
  10. LORATADINE [Concomitant]
     Active Substance: LORATADINE
     Dosage: TAKES 2 TO 3 TIMES PER DAY
     Route: 048
  11. BENADRYL [Concomitant]
     Active Substance: DIPHENHYDRAMINE HYDROCHLORIDE
     Indication: Hypersensitivity
     Dosage: EVERY 4 HOURS AS NEEDED, BUT SOMETIMES EVERY 2 HOURS
     Route: 048
  12. CALCIUM GUMMY [Concomitant]
     Indication: Gastric bypass
  13. DEXILANT [Concomitant]
     Active Substance: DEXLANSOPRAZOLE
     Dosage: AS NEEDED, MORNING AND EVENING
     Route: 048
  14. MAGNESIUM CITRATE [Concomitant]
     Active Substance: MAGNESIUM CITRATE
     Dosage: SUPPLIED AS 150MG.  PATIENT TAKES 1 TO 4 AS NEEDED
     Route: 048
  15. MAGNESIUM GLYCINATE [Concomitant]
     Active Substance: MAGNESIUM GLYCINATE
     Dosage: 400MG TABLETS, TAKES 1/2 TABLET TO 1 TABLET AS NEEDED
     Route: 048
  16. ALPRAZOLAM [Concomitant]
     Active Substance: ALPRAZOLAM
     Indication: Hypersensitivity
     Dosage: TAKES 1-2 MG AT BEDTIME
     Route: 048
  17. LAMOTRIGINE [Concomitant]
     Active Substance: LAMOTRIGINE
     Dosage: NON-OVULATION DAYS
     Route: 048
  18. LAMOTRIGINE [Concomitant]
     Active Substance: LAMOTRIGINE
     Dosage: DURING OVULATION
     Route: 048
  19. .GAMMA.-AMINOBUTYRIC ACID [Concomitant]
     Active Substance: .GAMMA.-AMINOBUTYRIC ACID
     Dosage: 1 HOUR BEFORE BEDTIME
     Route: 048
  20. MELATONIN [Concomitant]
     Active Substance: MELATONIN
     Dosage: TAKES 10MG AT NIGHT, AND THEN 10 MORE MG IN THE MIDDLE OF THE NIGHT
     Route: 048
  21. LUTEOLIN [Concomitant]
     Active Substance: LUTEOLIN
     Route: 048
  22. MOLYBDENUM [Concomitant]
     Active Substance: MOLYBDENUM
     Dosage: AS NEEDED
     Route: 048
  23. B 12 [Concomitant]
     Route: 048
  24. ALBUTEROL [Concomitant]
     Active Substance: ALBUTEROL
     Indication: Asthma
     Dosage: 2 PUFFS AS NEEDED
  25. AZELASTINE [Concomitant]
     Active Substance: AZELASTINE\AZELASTINE HYDROCHLORIDE
     Indication: Hypersensitivity
     Dosage: 2 SPRAYS IN NOSE
     Route: 045
  26. DOXYLAMINE SUCCINATE [Concomitant]
     Active Substance: DOXYLAMINE SUCCINATE
     Indication: Hypersensitivity
     Dosage: TAKES 25MG AS NEEDED, THEN TAKES A SECOND OR THIRD DOSE IF NEEDED THROUGH OUT THE NIGHT
     Route: 048
  27. TIZANIDINE [Concomitant]
     Active Substance: TIZANIDINE
     Route: 048
  28. DIFLUCAN [Concomitant]
     Active Substance: FLUCONAZOLE
     Indication: Fungal infection
     Dosage: AS NEEDED
  29. BENTYL [Concomitant]
     Active Substance: DICYCLOMINE HYDROCHLORIDE
     Indication: Abdominal pain
     Dosage: TAKES 1-4 AS NEEDED
     Route: 048
  30. METHYLPHENIDATE [Concomitant]
     Active Substance: METHYLPHENIDATE
     Indication: Attention deficit hyperactivity disorder
     Dosage: ONCE IN THE MORNING AND ONCE BEFORE LUNCH
     Route: 048
  31. ADVAIR HFA [Concomitant]
     Active Substance: FLUTICASONE PROPIONATE\SALMETEROL XINAFOATE
     Dosage: 2 PUFFS
     Dates: start: 20240422
  32. ALPRAZOLAM [Concomitant]
     Active Substance: ALPRAZOLAM
     Route: 048
     Dates: start: 20190129
  33. AZELASTINE [Concomitant]
     Active Substance: AZELASTINE\AZELASTINE HYDROCHLORIDE
     Dosage: 137 MCG
     Dates: start: 20221219
  34. BETAMETHASONE DIPROPIONATE [Concomitant]
     Active Substance: BETAMETHASONE DIPROPIONATE
     Route: 061
     Dates: start: 20240903
  35. cyanocobolamine [Concomitant]
     Route: 060
     Dates: start: 20210317
  36. DEXILANT [Concomitant]
     Active Substance: DEXLANSOPRAZOLE
     Route: 048
  37. EPINEPHRINE [Concomitant]
     Active Substance: EPINEPHRINE
     Route: 030
  38. FLUCONAZOLE [Concomitant]
     Active Substance: FLUCONAZOLE
     Route: 048
  39. FLUTICASONE PROPIONATE [Concomitant]
     Active Substance: FLUTICASONE PROPIONATE
  40. IMITREX [Concomitant]
     Active Substance: SUMATRIPTAN SUCCINATE
     Route: 048
  41. LACTASE [Concomitant]
     Active Substance: LACTASE
  42. LAMICTAL [Concomitant]
     Active Substance: LAMOTRIGINE
     Route: 048
  43. LEVOTHYROXINE [Concomitant]
     Active Substance: LEVOTHYROXINE\LEVOTHYROXINE SODIUM
     Dosage: 50 MCG
     Route: 048
  44. LUNESTA [Concomitant]
     Active Substance: ESZOPICLONE
     Route: 048
  45. MAGNESIUM [Concomitant]
     Active Substance: MAGNESIUM
  46. MELATONIN [Concomitant]
     Active Substance: MELATONIN
  47. ONDANSETRON [Concomitant]
     Active Substance: ONDANSETRON
     Route: 060
  48. PEPCID [Concomitant]
     Active Substance: FAMOTIDINE
     Route: 048
  49. PREDNISONE [Concomitant]
     Active Substance: PREDNISONE
  50. TIZANIDINE [Concomitant]
     Active Substance: TIZANIDINE
     Route: 048
  51. VENTOLIN [Concomitant]
     Active Substance: ALBUTEROL SULFATE

REACTIONS (8)
  - Lyme disease [Not Recovered/Not Resolved]
  - Drug ineffective [Unknown]
  - Mast cell activation syndrome [Unknown]
  - Anaphylactic reaction [Unknown]
  - Epistaxis [Unknown]
  - Migraine [Unknown]
  - Diarrhoea [Unknown]
  - Rash [Not Recovered/Not Resolved]

NARRATIVE: CASE EVENT DATE: 20240814
